FAERS Safety Report 5256770-6 (Version None)
Quarter: 2007Q1

REPORT INFORMATION
  Report Type: 
  Country: None (occurrence: None)
  Receive Date: 20070306
  Receipt Date: 20070222
  Transmission Date: 20070707
  Serious: Yes (Death, Hospitalization)
  Sender: FDA-Public Use
  Company Number: JP-PFIZER INC-2007012686

PATIENT
  Age: 72 Year
  Sex: Male

DRUGS (9)
  1. IRINOTECAN HCL [Suspect]
     Indication: NEOPLASM OF THYMUS
     Route: 042
     Dates: start: 20060101, end: 20060301
  2. IRINOTECAN HCL [Suspect]
     Route: 042
     Dates: start: 20060701, end: 20061101
  3. IRINOTECAN HCL [Suspect]
     Route: 042
     Dates: start: 20070111, end: 20070111
  4. KYTRIL [Concomitant]
  5. DECADRON [Concomitant]
  6. FESIN [Concomitant]
  7. PRIMPERAN INJ [Concomitant]
  8. LACTEC [Concomitant]
  9. ALL OTHER THERAPEUTIC PRODUCTS [Concomitant]

REACTIONS (4)
  - ANAEMIA [None]
  - DISSEMINATED INTRAVASCULAR COAGULATION [None]
  - MULTI-ORGAN FAILURE [None]
  - THROMBOCYTOPENIA [None]
